FAERS Safety Report 6440647-4 (Version None)
Quarter: 2009Q4

REPORT INFORMATION
  Report Type: 
  Country: None (occurrence: None)
  Receive Date: 20091116
  Receipt Date: 20091106
  Transmission Date: 20100525
  Serious: Yes (Hospitalization)
  Sender: FDA-Public Use
  Company Number: PHHO2009FR13930

PATIENT
  Sex: Female
  Weight: 80 kg

DRUGS (4)
  1. RAD 666 RAD+TAB [Suspect]
     Indication: HEART TRANSPLANT
     Dosage: UNK
     Route: 048
     Dates: start: 20090408
  2. NEORAL [Suspect]
     Indication: HEART TRANSPLANT
     Dosage: UNK
     Dates: start: 20020101
  3. MYCOPHENOLATE MOFETIL [Suspect]
     Indication: HEART TRANSPLANT
     Dosage: UNK
     Dates: start: 20020101
  4. CORTANCYL [Concomitant]

REACTIONS (1)
  - LUNG DISORDER [None]
